FAERS Safety Report 7397863-7 (Version None)
Quarter: 2011Q2

REPORT INFORMATION
  Report Type: 
  Country: None (occurrence: None)
  Receive Date: 20110406
  Receipt Date: 20110325
  Transmission Date: 20111010
  Serious: Yes (Death)
  Sender: FDA-Public Use
  Company Number: PL-GENENTECH-315999

PATIENT
  Sex: Female
  Weight: 60 kg

DRUGS (6)
  1. HEVIRAN [Concomitant]
     Indication: PROPHYLAXIS
     Dosage: 200 MG, TID
     Route: 048
     Dates: start: 20110225
  2. CLADRIBINE [Suspect]
     Indication: CHRONIC LYMPHOCYTIC LEUKAEMIA
     Dosage: 7 MG, QAM
     Route: 042
     Dates: start: 20110223, end: 20110225
  3. BISEPTOL [Concomitant]
     Indication: PROPHYLAXIS
     Dosage: 960 MG, QOD
     Route: 048
     Dates: start: 20110225
  4. RITUXIMAB [Suspect]
     Indication: CHRONIC LYMPHOCYTIC LEUKAEMIA
     Dosage: 100 MG, X1
     Route: 065
     Dates: start: 20101201, end: 20101201
  5. KALDYUM [Concomitant]
     Indication: HYPOCALCAEMIA
     Dosage: 315 MG, BID
     Route: 048
     Dates: start: 20100113
  6. ENCORTON [Concomitant]
     Indication: HAEMOLYSIS
     Dosage: 10 MG, QAM
     Route: 048
     Dates: start: 20080620

REACTIONS (1)
  - ANAEMIA HAEMOLYTIC AUTOIMMUNE [None]
